FAERS Safety Report 9190742 (Version 1)
Quarter: 2013Q1

REPORT INFORMATION
  Report Type: Spontaneous
  Country: DE (occurrence: DE)
  Receive Date: 20130326
  Receipt Date: 20130326
  Transmission Date: 20140127
  Serious: Yes (Death)
  Sender: FDA-Public Use
  Company Number: DE-ROCHE-1116781

PATIENT
  Age: 55 Year
  Sex: Male
  Weight: 67 kg

DRUGS (2)
  1. ZELBORAF [Suspect]
     Indication: METASTATIC MALIGNANT MELANOMA
     Route: 048
     Dates: start: 20120803, end: 20120816
  2. DEXAMETHASON [Concomitant]
     Indication: BRAIN OEDEMA
     Route: 048
     Dates: start: 20120803

REACTIONS (2)
  - Neoplasm malignant [Fatal]
  - Dysgeusia [Recovered/Resolved]
